FAERS Safety Report 8264426-0 (Version None)
Quarter: 2012Q2

REPORT INFORMATION
  Report Type: 
  Country: None (occurrence: None)
  Receive Date: 20120403
  Receipt Date: 20120322
  Transmission Date: 20120825
  Serious: Yes (Other)
  Sender: FDA-Public Use
  Company Number: 2012AP000817

PATIENT
  Age: 45 Year
  Sex: Male

DRUGS (2)
  1. TRAMADOL HYDROCHLORIDE [Suspect]
     Indication: PRODUCT USED FOR UNKNOWN INDICATION
     Dates: start: 20091101, end: 20100801
  2. GABAPENTIN [Suspect]
     Indication: PRODUCT USED FOR UNKNOWN INDICATION
     Dates: start: 20091101, end: 20100801

REACTIONS (9)
  - EROSIVE OESOPHAGITIS [None]
  - EPIGASTRIC DISCOMFORT [None]
  - POST PROCEDURAL COMPLICATION [None]
  - GASTRIC DILATATION [None]
  - WRONG TECHNIQUE IN DRUG USAGE PROCESS [None]
  - ABDOMINAL PAIN [None]
  - OESOPHAGEAL HAEMORRHAGE [None]
  - LIMB OPERATION [None]
  - IMPAIRED GASTRIC EMPTYING [None]
